FAERS Safety Report 10136832 (Version 1)
Quarter: 2014Q2

REPORT INFORMATION
  Report Type: Spontaneous
  Country: GB (occurrence: None)
  Receive Date: 20140425
  Receipt Date: 20140425
  Transmission Date: 20141212
  Serious: Yes (Hospitalization)
  Sender: FDA-Public Use
  Company Number: 2302861

PATIENT
  Age: 28 Year
  Sex: 0

DRUGS (11)
  1. GENTAMICIN SULFATE [Suspect]
     Indication: PRODUCT USED FOR UNKNOWN INDICATION
     Route: 041
     Dates: start: 20120523
  2. MEROPENEM [Suspect]
     Indication: NEUTROPENIC SEPSIS
     Route: 041
     Dates: start: 20120506, end: 20120514
  3. AMPHOTERICIN B [Suspect]
     Indication: NEUTROPENIC SEPSIS
     Route: 041
     Dates: start: 20120428, end: 20120523
  4. CIPROFLOXACIN [Suspect]
     Indication: NEUTROPENIC SEPSIS
     Route: 048
     Dates: start: 20120419, end: 20120503
  5. AMOXICILLIN TRIHYDRATE + POTASSIUM CLAVULANATE [Suspect]
     Indication: PRODUCT USED FOR UNKNOWN INDICATION
     Route: 048
     Dates: start: 20120523, end: 20120530
  6. ITRACONAZOLE [Suspect]
     Indication: NEUTROPENIC SEPSIS
     Dosage: SUGAR FREE
     Dates: start: 20120419, end: 20120428
  7. PENTAMIDINE [Suspect]
     Indication: PRODUCT USED FOR UNKNOWN INDICATION
     Route: 045
     Dates: start: 20120503
  8. PIPERACILLIN SODIUM W/TAZOBACTAM SODIUM [Suspect]
     Indication: PRODUCT USED FOR UNKNOWN INDICATION
     Route: 041
     Dates: start: 20120503, end: 20120506
  9. PANTOPRAZOLE [Concomitant]
  10. LANSOPRAZOLE [Concomitant]
  11. ENSURE [Concomitant]

REACTIONS (1)
  - Clostridium difficile infection [None]
